FAERS Safety Report 20690716 (Version 1)
Quarter: 2022Q2

REPORT INFORMATION
  Report Type: Spontaneous
  Country: US (occurrence: None)
  Receive Date: 20220406
  Receipt Date: 20220406
  Transmission Date: 20220721
  Serious: No
  Sender: FDA-Public Use
  Company Number: None

PATIENT
  Sex: Female

DRUGS (2)
  1. DEVICE [Suspect]
     Active Substance: DEVICE
     Indication: Pulmonary arterial hypertension
     Route: 042
     Dates: start: 201812
  2. VELETRI [Suspect]
     Active Substance: EPOPROSTENOL

REACTIONS (2)
  - Device alarm issue [None]
  - Malaise [None]
